FAERS Safety Report 10478989 (Version 1)
Quarter: 2014Q3

REPORT INFORMATION
  Report Type: Spontaneous
  Country: US (occurrence: US)
  Receive Date: 20140926
  Receipt Date: 20140926
  Transmission Date: 20150326
  Serious: No
  Sender: FDA-Public Use
  Company Number: US-BAYER-2014-140807

PATIENT
  Age: 79 Year
  Sex: Male
  Weight: 80.73 kg

DRUGS (5)
  1. ALEVE [Suspect]
     Active Substance: NAPROXEN SODIUM
     Indication: ANALGESIC THERAPY
     Dosage: UNK
     Route: 048
  2. PAIN STOPPER EXTRA [Suspect]
     Active Substance: ACETAMINOPHEN\ASPIRIN\CAFFEINE\SALICYLAMIDE
     Indication: ANALGESIC THERAPY
     Dosage: 2 DF, PRN
     Route: 048
  3. OSSOPAN [DURAPATITE] [Concomitant]
  4. LORATADINE. [Concomitant]
     Active Substance: LORATADINE
  5. BAYER EXTRA STRENGTH PM [Suspect]
     Active Substance: ASPIRIN\DIPHENHYDRAMINE
     Indication: ANALGESIC THERAPY
     Dosage: 2 DF, PRN
     Route: 048

REACTIONS (3)
  - Tinnitus [Recovered/Resolved]
  - Insomnia [Unknown]
  - Drug ineffective [None]
